FAERS Safety Report 17801042 (Version 1)
Quarter: 2020Q2

REPORT INFORMATION
  Report Type: Spontaneous
  Country: FI (occurrence: FI)
  Receive Date: 20200519
  Receipt Date: 20200519
  Transmission Date: 20200714
  Serious: Yes (Other)
  Sender: FDA-Public Use
  Company Number: FI-AMGEN-FINSP2020080026

PATIENT
  Age: 52 Year
  Sex: Female

DRUGS (4)
  1. CANDESARTAN ORION [Concomitant]
     Active Substance: CANDESARTAN
     Indication: HYPERTENSION
     Dosage: 16 MG, QD
     Route: 048
  2. TRILEPTAL [Concomitant]
     Active Substance: OXCARBAZEPINE
     Indication: TRIGEMINAL NEURALGIA
     Dosage: 1500 MG, QD
     Route: 048
  3. AIMOVIG [Suspect]
     Active Substance: ERENUMAB-AOOE
     Indication: MIGRAINE PROPHYLAXIS
     Dosage: UNK
     Route: 058
     Dates: start: 20190404, end: 201911
  4. THYROXIN [Concomitant]
     Active Substance: LEVOTHYROXINE
     Indication: PRODUCT USED FOR UNKNOWN INDICATION
     Dosage: 125 UG, QD
     Route: 048

REACTIONS (3)
  - Abdominal distension [Recovered/Resolved]
  - Diarrhoea [Recovered/Resolved]
  - Abdominal pain [Recovered/Resolved]

NARRATIVE: CASE EVENT DATE: 20190820
